FAERS Safety Report 4919268-8 (Version None)
Quarter: 2006Q1

REPORT INFORMATION
  Report Type: 
  Country: None (occurrence: None)
  Receive Date: 20060215
  Receipt Date: 20060206
  Transmission Date: 20060701
  Serious: Yes (Other)
  Sender: FDA-Public Use
  Company Number: 163-20785-06020092

PATIENT
  Age: 66 Year
  Sex: Male

DRUGS (35)
  1. THALOMID [Suspect]
     Indication: WALDENSTROM'S MACROGLOBULINAEMIA REFRACTORY
     Dosage: SEE IMAGE
     Route: 048
     Dates: start: 20040226
  2. THALOMID [Suspect]
     Indication: WALDENSTROM'S MACROGLOBULINAEMIA REFRACTORY
     Dosage: SEE IMAGE
     Route: 048
     Dates: start: 20040325
  3. THALOMID [Suspect]
     Indication: WALDENSTROM'S MACROGLOBULINAEMIA REFRACTORY
     Dosage: SEE IMAGE
     Route: 048
     Dates: start: 20040619
  4. THALOMID [Suspect]
     Indication: WALDENSTROM'S MACROGLOBULINAEMIA REFRACTORY
     Dosage: SEE IMAGE
     Route: 048
     Dates: start: 20040806
  5. DEXAMETHASONE [Suspect]
     Indication: WALDENSTROM'S MACROGLOBULINAEMIA REFRACTORY
     Dosage: SEE IMAGE
     Route: 048
     Dates: start: 20040226
  6. DEXAMETHASONE [Suspect]
     Indication: WALDENSTROM'S MACROGLOBULINAEMIA REFRACTORY
     Dosage: SEE IMAGE
     Route: 048
     Dates: start: 20040325
  7. DEXAMETHASONE [Suspect]
     Indication: WALDENSTROM'S MACROGLOBULINAEMIA REFRACTORY
     Dosage: SEE IMAGE
     Route: 048
     Dates: start: 20040401
  8. DEXAMETHASONE [Suspect]
     Indication: WALDENSTROM'S MACROGLOBULINAEMIA REFRACTORY
     Dosage: SEE IMAGE
     Route: 048
     Dates: start: 20040619
  9. DEXAMETHASONE [Suspect]
     Indication: WALDENSTROM'S MACROGLOBULINAEMIA REFRACTORY
     Dosage: SEE IMAGE
     Route: 048
     Dates: start: 20040806
  10. CYCLOPHOSPHAMIDE [Suspect]
     Indication: WALDENSTROM'S MACROGLOBULINAEMIA REFRACTORY
     Dosage: SEE IMAGE
     Route: 042
     Dates: start: 20040226
  11. CYCLOPHOSPHAMIDE [Suspect]
     Indication: WALDENSTROM'S MACROGLOBULINAEMIA REFRACTORY
     Dosage: SEE IMAGE
     Route: 042
     Dates: start: 20040325
  12. CYCLOPHOSPHAMIDE [Suspect]
     Indication: WALDENSTROM'S MACROGLOBULINAEMIA REFRACTORY
     Dosage: SEE IMAGE
     Route: 042
     Dates: start: 20040619
  13. CYCLOPHOSPHAMIDE [Suspect]
     Indication: WALDENSTROM'S MACROGLOBULINAEMIA REFRACTORY
     Dosage: SEE IMAGE
     Route: 042
     Dates: start: 20040806
  14. ETOPOSIDE [Suspect]
     Indication: WALDENSTROM'S MACROGLOBULINAEMIA REFRACTORY
     Dosage: SEE IMAGE
     Route: 042
     Dates: start: 20040226
  15. ETOPOSIDE [Suspect]
     Indication: WALDENSTROM'S MACROGLOBULINAEMIA REFRACTORY
     Dosage: SEE IMAGE
     Route: 042
     Dates: start: 20040325
  16. CISPLATIN [Suspect]
     Indication: WALDENSTROM'S MACROGLOBULINAEMIA REFRACTORY
     Dosage: 10MG/M2 X 4 DAYS, INTRAVENOUS
     Route: 042
     Dates: start: 20040226
  17. CISPLATIN [Suspect]
     Indication: WALDENSTROM'S MACROGLOBULINAEMIA REFRACTORY
     Dosage: 10MG/M2 X 4 DAYS, INTRAVENOUS
     Route: 042
     Dates: start: 20040325
  18. ADRIAMYCIN PFS [Suspect]
     Indication: WALDENSTROM'S MACROGLOBULINAEMIA REFRACTORY
     Dosage: SEE IMAGE
     Route: 042
     Dates: start: 20040226
  19. ADRIAMYCIN PFS [Suspect]
     Indication: WALDENSTROM'S MACROGLOBULINAEMIA REFRACTORY
     Dosage: SEE IMAGE
     Route: 042
     Dates: start: 20040325
  20. ADRIAMYCIN PFS [Suspect]
     Indication: WALDENSTROM'S MACROGLOBULINAEMIA REFRACTORY
     Dosage: SEE IMAGE
     Route: 042
     Dates: start: 20040619
  21. ADRIAMYCIN PFS [Suspect]
     Indication: WALDENSTROM'S MACROGLOBULINAEMIA REFRACTORY
     Dosage: SEE IMAGE
     Route: 042
     Dates: start: 20040806
  22. BORTEZOMIB (BORTEZOMIB) [Suspect]
     Indication: PANCYTOPENIA
     Dosage: SEE IMAGE
     Route: 042
     Dates: start: 20040325
  23. BORTEZOMIB (BORTEZOMIB) [Suspect]
     Indication: PANCYTOPENIA
     Dosage: SEE IMAGE
     Route: 042
     Dates: start: 20040401
  24. BORTEZOMIB (BORTEZOMIB) [Suspect]
     Indication: PANCYTOPENIA
     Dosage: SEE IMAGE
     Route: 042
     Dates: start: 20040619
  25. BORTEZOMIB (BORTEZOMIB) [Suspect]
     Indication: PANCYTOPENIA
     Dosage: SEE IMAGE
     Route: 042
     Dates: start: 20040806
  26. ALEMTUZUMAB (ALEMTUZUMAB) [Suspect]
     Indication: WALDENSTROM'S MACROGLOBULINAEMIA REFRACTORY
     Dosage: 30 MG, X 3 TIMES WEEKLY FOR 4 WKS
     Dates: start: 20040513
  27. RITUXIMAB (RITUXIMAB) [Suspect]
     Indication: WALDENSTROM'S MACROGLOBULINAEMIA REFRACTORY
     Dosage: 400 MG/M2, TWICE WEEKLY X 4 DOSES; TWICE WEEKLY
     Dates: start: 20040619
  28. RITUXIMAB (RITUXIMAB) [Suspect]
     Indication: WALDENSTROM'S MACROGLOBULINAEMIA REFRACTORY
     Dosage: 400 MG/M2, TWICE WEEKLY X 4 DOSES; TWICE WEEKLY
     Dates: start: 20040806
  29. RAPAMYCIN (SIROLIMUS) [Suspect]
     Indication: WALDENSTROM'S MACROGLOBULINAEMIA REFRACTORY
     Dosage: SEE IMAGE
     Dates: start: 20040619
  30. RAPAMYCIN (SIROLIMUS) [Suspect]
     Indication: WALDENSTROM'S MACROGLOBULINAEMIA REFRACTORY
     Dosage: SEE IMAGE
     Dates: start: 20040806
  31. INTERFERON (INTERFERON GAMMA) [Suspect]
     Indication: WALDENSTROM'S MACROGLOBULINAEMIA REFRACTORY
     Dosage: SEE IMAGE
     Route: 058
     Dates: start: 20040619
  32. INTERFERON (INTERFERON GAMMA) [Suspect]
     Indication: WALDENSTROM'S MACROGLOBULINAEMIA REFRACTORY
     Dosage: SEE IMAGE
     Route: 058
     Dates: start: 20040806
  33. ANTIVIRAL (ANTIVIRALS FOR SYSTEMIC USE) [Concomitant]
  34. ANTIFUNGAL (ANTIFUNGALS) [Concomitant]
  35. ANTIBIOTIC (ANTIBIOTICS) [Concomitant]

REACTIONS (7)
  - CONDITION AGGRAVATED [None]
  - HYPOXIA [None]
  - PANCYTOPENIA [None]
  - PARAINFLUENZAE VIRAL LARYNGOTRACHEOBRONCHITIS [None]
  - PNEUMONIA [None]
  - PNEUMONITIS [None]
  - PULMONARY HAEMORRHAGE [None]
